FAERS Safety Report 16702750 (Version 1)
Quarter: 2019Q3

REPORT INFORMATION
  Report Type: Other
  Country: US (occurrence: US)
  Receive Date: 20190814
  Receipt Date: 20190814
  Transmission Date: 20191004
  Serious: Yes (Hospitalization, Other)
  Sender: FDA-Public Use
  Company Number: US-INTERCEPT-PM2019001208

PATIENT
  Age: 59 Year
  Sex: Female

DRUGS (10)
  1. OCALIVA [Suspect]
     Active Substance: OBETICHOLIC ACID
     Indication: PRIMARY BILIARY CHOLANGITIS
     Dosage: 5 MG, QW
     Route: 048
     Dates: start: 20180327, end: 20190619
  2. PLAQUENIL                          /00072602/ [Concomitant]
     Active Substance: HYDROXYCHLOROQUINE DIPHOSPHATE
  3. OCALIVA [Suspect]
     Active Substance: OBETICHOLIC ACID
     Dosage: 5 MG, QW
     Dates: start: 20190724
  4. VITAMIN D [Concomitant]
     Active Substance: VITAMIN D NOS
  5. FUROSEMIDE. [Concomitant]
     Active Substance: FUROSEMIDE
     Dosage: 40 MG, UNK
     Dates: start: 20190619
  6. DILANTIN [Concomitant]
     Active Substance: PHENYTOIN
  7. SPIRONOLACTONE. [Concomitant]
     Active Substance: SPIRONOLACTONE
     Dosage: 100 MG, UNK
     Dates: start: 20190619
  8. URSODEOXYCHOLIC ACID [Concomitant]
     Active Substance: URSODIOL
     Dosage: 600 MG, BID
     Dates: start: 20170526
  9. LEXAPRO [Concomitant]
     Active Substance: ESCITALOPRAM OXALATE
  10. FOLIC ACID. [Concomitant]
     Active Substance: FOLIC ACID

REACTIONS (13)
  - Urinary tract infection [Unknown]
  - Fall [Recovering/Resolving]
  - Decreased appetite [Unknown]
  - Anal incontinence [Unknown]
  - Pancytopenia [Unknown]
  - Ascites [Recovering/Resolving]
  - Femoral neck fracture [Recovering/Resolving]
  - Leukocytosis [Unknown]
  - Nausea [Unknown]
  - Anaemia [Unknown]
  - Hepatic cirrhosis [Unknown]
  - Oedema [Recovering/Resolving]
  - Hypotension [Unknown]

NARRATIVE: CASE EVENT DATE: 2019
